FAERS Safety Report 19912061 (Version 1)
Quarter: 2021Q4

REPORT INFORMATION
  Report Type: Spontaneous
  Country: US (occurrence: US)
  Receive Date: 20211001
  Receipt Date: 20211001
  Transmission Date: 20220303
  Serious: Yes (Hospitalization)
  Sender: FDA-Public Use
  Company Number: None

PATIENT
  Age: 50 Year
  Sex: Female

DRUGS (1)
  1. IMATINIB MESYLATE [Suspect]
     Active Substance: IMATINIB MESYLATE
     Indication: Mast cell activation syndrome
     Dosage: TAKE 2 TABLETS BY MOUTH DAILY IN THE MORNING
     Route: 048
     Dates: start: 20200224

REACTIONS (1)
  - Infection [None]

NARRATIVE: CASE EVENT DATE: 20210916
